FAERS Safety Report 5167286-X (Version None)
Quarter: 2006Q4

REPORT INFORMATION
  Report Type: 
  Country: None (occurrence: None)
  Receive Date: 20061124
  Receipt Date: 20061115
  Transmission Date: 20070319
  Serious: Yes (Other)
  Sender: FDA-Public Use
  Company Number: MEDI-0005137

PATIENT
  Age: 4 Month
  Sex: Male

DRUGS (1)
  1. SYNAGIS [Suspect]
     Dosage: INTRAMUSCULAR
     Route: 030
     Dates: start: 20060101

REACTIONS (4)
  - GAIT DISTURBANCE [None]
  - LIVEDO RETICULARIS [None]
  - PALLOR [None]
  - SYNCOPE VASOVAGAL [None]
